FAERS Safety Report 5860095-5 (Version None)
Quarter: 2008Q3

REPORT INFORMATION
  Report Type: 
  Country: None (occurrence: None)
  Receive Date: 20080827
  Receipt Date: 20080814
  Transmission Date: 20090109
  Serious: Yes (Hospitalization)
  Sender: FDA-Public Use
  Company Number: FR-ELI_LILLY_AND_COMPANY-FR200805000868

PATIENT
  Age: 67 Year
  Sex: Female
  Weight: 61 kg

DRUGS (4)
  1. FORTEO [Suspect]
     Indication: OSTEOPOROSIS
     Dosage: 20 UG, DAILY (1/D)
     Route: 058
     Dates: start: 20070114, end: 20080501
  2. LEVOTHYROX [Concomitant]
     Dosage: 1375 UG, DAILY (1/D)
     Route: 048
  3. IRBESARTAN [Concomitant]
     Dosage: 1 D/F, DAILY (1/D)
     Route: 048
  4. SOTALOL HCL [Concomitant]
     Dosage: 0.5 D/F, DAILY (1/D)
     Route: 048

REACTIONS (3)
  - ABDOMINAL PAIN [None]
  - HEPATIC FUNCTION ABNORMAL [None]
  - INFLAMMATION [None]
